FAERS Safety Report 6524054-1 (Version None)
Quarter: 2009Q4

REPORT INFORMATION
  Report Type: 
  Country: None (occurrence: None)
  Receive Date: 20091230
  Receipt Date: 20091230
  Transmission Date: 20100525
  Serious: No
  Sender: FDA-Public Use
  Company Number: None

PATIENT
  Age: 58 Year
  Sex: Male
  Weight: 95.2554 kg

DRUGS (1)
  1. WELLBUTRIN [Suspect]
     Dosage: 300MG DAILY PO
     Route: 048
     Dates: start: 20050201, end: 20091218

REACTIONS (3)
  - AMNESIA [None]
  - LOSS OF EMPLOYMENT [None]
  - PARTNER STRESS [None]
